FAERS Safety Report 13980509 (Version 2)
Quarter: 2017Q3

REPORT INFORMATION
  Report Type: Spontaneous
  Country: US (occurrence: US)
  Receive Date: 20170918
  Receipt Date: 20170928
  Transmission Date: 20171128
  Serious: Yes (Other)
  Sender: FDA-Public Use
  Company Number: US-AUROBINDO-AUR-APL-2017-40309

PATIENT
  Age: 27 Year
  Sex: Male

DRUGS (2)
  1. MYCOPHENOLATE MOFETIL. [Suspect]
     Active Substance: MYCOPHENOLATE MOFETIL
     Indication: CARDIAC SARCOIDOSIS
     Route: 065
  2. PREDNISONE. [Suspect]
     Active Substance: PREDNISONE
     Indication: SARCOIDOSIS
     Dosage: 40 MG, UNK
     Route: 048

REACTIONS (4)
  - Interstitial lung disease [Recovered/Resolved]
  - Varicella zoster virus infection [Recovered/Resolved]
  - Immunodeficiency common variable [Recovered/Resolved]
  - Respiratory failure [Recovered/Resolved]
